FAERS Safety Report 9087376 (Version 1)
Quarter: 2013Q1

REPORT INFORMATION
  Report Type: Spontaneous
  Country: US (occurrence: US)
  Receive Date: 20130131
  Receipt Date: 20130131
  Transmission Date: 20140127
  Serious: Yes (Hospitalization)
  Sender: FDA-Public Use
  Company Number: US-PFIZER INC-2013036749

PATIENT
  Age: 50 Year
  Sex: Male

DRUGS (11)
  1. DOFETILIDE [Suspect]
     Indication: ATRIAL FIBRILLATION
     Dosage: 250 UG, 2X/DAY
     Route: 048
  2. DOFETILIDE [Suspect]
     Dosage: 500 UG, 2X/DAY
     Route: 048
  3. DOFETILIDE [Suspect]
     Dosage: 20 CAPSULE (5000 UG)
     Route: 048
  4. ALLOPURINOL [Concomitant]
     Dosage: 100 MG, 1X/DAY
     Route: 048
  5. ISOSORBIDE DINITRATE [Concomitant]
     Dosage: 30 MG, 3X/DAY
     Route: 048
  6. WARFARIN [Concomitant]
     Dosage: 7 MG, 1X/DAY
     Route: 048
  7. ALPRAZOLAM [Concomitant]
     Dosage: 0.5 MG, 3X/DAY
     Route: 048
  8. SPIRONOLACTONE [Concomitant]
     Dosage: 25 MG, 2X/DAY
     Route: 048
  9. BUMETANIDE [Concomitant]
     Dosage: 1 MG, 1X/DAY
     Route: 048
  10. ACETYLSALICYLIC ACID [Concomitant]
     Dosage: 81 MG, 1X/DAY
     Route: 048
  11. HYDRALAZINE [Concomitant]
     Dosage: 50 MG, 3X/DAY
     Route: 048

REACTIONS (7)
  - Medication error [Unknown]
  - Accidental overdose [Unknown]
  - Nausea [Recovered/Resolved]
  - Vomiting [Recovered/Resolved]
  - Dyspnoea [Recovered/Resolved]
  - Electrocardiogram QT prolonged [Recovering/Resolving]
  - Cardiac enzymes increased [Recovered/Resolved]
